FAERS Safety Report 4411231-9 (Version None)
Quarter: 2004Q2

REPORT INFORMATION
  Report Type: 
  Country: None (occurrence: None)
  Receive Date: 20040630
  Receipt Date: 20040519
  Transmission Date: 20050107
  Serious: No
  Sender: FDA-Public Use
  Company Number: 04P-163-0261566-00

PATIENT
  Age: 66 Year
  Sex: Male
  Weight: 81.6475 kg

DRUGS (7)
  1. HUMIRA [Suspect]
     Indication: RHEUMATOID ARTHRITIS
     Dosage: 40 MG, 1 IN 1-2  WK, SUBCUTANEOUS
     Route: 058
     Dates: start: 20031001, end: 20031101
  2. HUMIRA [Suspect]
     Indication: RHEUMATOID ARTHRITIS
     Dosage: 40 MG, 1 IN 1-2  WK, SUBCUTANEOUS
     Route: 058
     Dates: start: 20031101, end: 20040424
  3. PREDNISONE [Concomitant]
  4. MULTI-VITAMINS [Concomitant]
  5. GLUCOSAMINE W/CHONDROITIN SULFATES [Concomitant]
  6. RAMIPRIL [Concomitant]
  7. ASPIRIN [Concomitant]

REACTIONS (7)
  - BACK PAIN [None]
  - COORDINATION ABNORMAL [None]
  - DIZZINESS [None]
  - HYPERAESTHESIA [None]
  - HYPOAESTHESIA [None]
  - NECK PAIN [None]
  - PARAESTHESIA [None]
